FAERS Safety Report 17791759 (Version 1)
Quarter: 2020Q2

REPORT INFORMATION
  Report Type: Spontaneous
  Country: FR (occurrence: FR)
  Receive Date: 20200515
  Receipt Date: 20200515
  Transmission Date: 20200714
  Serious: Yes (Life-Threatening)
  Sender: FDA-Public Use
  Company Number: NVSC2020FR130540

PATIENT
  Age: 40 Year
  Sex: Female
  Weight: 56.5 kg

DRUGS (9)
  1. OXAZEPAM. [Suspect]
     Active Substance: OXAZEPAM
     Indication: PRODUCT USED FOR UNKNOWN INDICATION
     Dosage: 150 MG
     Route: 048
     Dates: start: 20200120, end: 20200120
  2. ALPRAZOLAM. [Suspect]
     Active Substance: ALPRAZOLAM
     Indication: TOXICITY TO VARIOUS AGENTS
     Dosage: 5 MG
     Route: 048
     Dates: start: 20200120, end: 20200120
  3. ESCITALOPRAM [Suspect]
     Active Substance: ESCITALOPRAM OXALATE
     Indication: TOXICITY TO VARIOUS AGENTS
     Dosage: 280 MG
     Route: 048
     Dates: start: 20200120, end: 20200120
  4. DOXYLAMINE SUCCINATE. [Suspect]
     Active Substance: DOXYLAMINE SUCCINATE
     Indication: TOXICITY TO VARIOUS AGENTS
     Dosage: 150 MG
     Route: 048
     Dates: start: 20200120, end: 20200120
  5. TRAMADOL. [Suspect]
     Active Substance: TRAMADOL
     Indication: TOXICITY TO VARIOUS AGENTS
     Dosage: 1 G
     Route: 048
     Dates: start: 20200120, end: 20200120
  6. NAPROXENE [Suspect]
     Active Substance: NAPROXEN
     Indication: TOXICITY TO VARIOUS AGENTS
     Dosage: 550 MG
     Route: 048
     Dates: start: 20200120, end: 20200120
  7. CODEINE [Suspect]
     Active Substance: CODEINE
     Indication: TOXICITY TO VARIOUS AGENTS
     Dosage: 475 MG
     Route: 048
     Dates: start: 20200120, end: 20200120
  8. PARACETAMOL [Suspect]
     Active Substance: ACETAMINOPHEN
     Indication: TOXICITY TO VARIOUS AGENTS
     Dosage: 11.4 G
     Route: 048
     Dates: start: 20200120, end: 20200120
  9. EBASTINE [Suspect]
     Active Substance: EBASTINE
     Indication: TOXICITY TO VARIOUS AGENTS
     Dosage: 20 MG
     Route: 048
     Dates: start: 20200120, end: 20200120

REACTIONS (3)
  - Coma [Recovered/Resolved]
  - Hepatic failure [Recovering/Resolving]
  - Mixed liver injury [Recovering/Resolving]

NARRATIVE: CASE EVENT DATE: 20200120
